FAERS Safety Report 7623348-6 (Version None)
Quarter: 2011Q3

REPORT INFORMATION
  Report Type: 
  Country: None (occurrence: None)
  Receive Date: 20110720
  Receipt Date: 20110713
  Transmission Date: 20111222
  Serious: Yes (Other)
  Sender: FDA-Public Use
  Company Number: US-ROCHE-786836

PATIENT
  Sex: Female
  Weight: 65.9 kg

DRUGS (10)
  1. PREDNISONE [Concomitant]
     Dosage: DOSE VARIES
     Route: 048
  2. LEXAPRO [Concomitant]
     Dosage: INDICATION:BIOCHEMICAL REACTION TO THE STEROIDS
     Route: 048
  3. XANAX [Concomitant]
     Dosage: AS NEEDED, INDICATION:BIOCHEMICAL REACTION TO THE STEROIDS
     Route: 048
  4. COLCRYS [Concomitant]
     Route: 048
  5. VALTREX [Concomitant]
     Route: 048
  6. AMBIEN [Concomitant]
     Dosage: AT NIGHT
     Route: 048
  7. TORADOL [Concomitant]
     Indication: INFLAMMATION
     Dosage: FERQUNCY:1-2 INJECTIONS/DAY AS NEEDED
     Route: 030
  8. BONIVA [Suspect]
     Indication: OSTEOPOROTIC FRACTURE
     Dosage: FORM: SYRINGE , WALGREENS INFUSION, SINCE 3 MONTHS AND 1 WEEK, LAST DOSE PRIOR TO SAE: 24 JUNE 2011.
     Route: 042
     Dates: start: 20110301
  9. CARDIZEM [Concomitant]
     Dosage: INDICATION:SVT / VASCULAR HEADACHE
     Route: 048
  10. IMMUNE GLOBULIN INTRAVENOUS (HUMAN) [Concomitant]
     Dosage: DRUG REPORTED AS HIZENTRA, INJECTION IN LEG
     Route: 058

REACTIONS (20)
  - SYRINGE ISSUE [None]
  - FALL [None]
  - LABYRINTHITIS [None]
  - INJURY [None]
  - IMMUNE SYSTEM DISORDER [None]
  - UPPER RESPIRATORY TRACT INFECTION [None]
  - EXTRAVASATION [None]
  - INJECTION SITE INDURATION [None]
  - INJECTION SITE INFLAMMATION [None]
  - INJECTION SITE PRURITUS [None]
  - CELLULITIS [None]
  - DRUG ADMINISTRATION ERROR [None]
  - LUMBAR VERTEBRAL FRACTURE [None]
  - MUSCLE DISORDER [None]
  - NERVOUS SYSTEM DISORDER [None]
  - INJECTION SITE MASS [None]
  - BONE PAIN [None]
  - SKIN LESION [None]
  - INJECTION SITE ANAESTHESIA [None]
  - INJECTION SITE PAIN [None]
